FAERS Safety Report 17434780 (Version 2)
Quarter: 2020Q1

REPORT INFORMATION
  Report Type: Spontaneous
  Country: AR (occurrence: AR)
  Receive Date: 20200219
  Receipt Date: 20200305
  Transmission Date: 20200409
  Serious: Yes (Hospitalization)
  Sender: FDA-Public Use
  Company Number: NVSC2020AR042733

PATIENT
  Sex: Female

DRUGS (4)
  1. CALCIUM SANDOZ 1000 MG (CALCIUM CARBONATE\CALCIUM LACTOGLUCONATE) [Suspect]
     Active Substance: CALCIUM CARBONATE\CALCIUM LACTATE GLUCONATE
     Dosage: 5 DF, QD
     Route: 065
     Dates: start: 201912
  2. CALCIUM SANDOZ 1000 MG (CALCIUM CARBONATE\CALCIUM LACTOGLUCONATE) [Suspect]
     Active Substance: CALCIUM CARBONATE\CALCIUM LACTATE GLUCONATE
     Dosage: 2 DF, QD
     Route: 065
     Dates: start: 20200110
  3. CALCIUM SANDOZ 1000 MG (CALCIUM CARBONATE\CALCIUM LACTOGLUCONATE) [Suspect]
     Active Substance: CALCIUM CARBONATE\CALCIUM LACTATE GLUCONATE
     Indication: HYPOCALCAEMIA
     Dosage: 5 DF, QD  (STARTED APPROXIMATELY 20 YEARS AGO)
     Route: 065
  4. CALCIUM SANDOZ 1000 MG (CALCIUM CARBONATE\CALCIUM LACTOGLUCONATE) [Suspect]
     Active Substance: CALCIUM CARBONATE\CALCIUM LACTATE GLUCONATE
     Dosage: 2 UNK
     Route: 065

REACTIONS (10)
  - Parkinson^s disease [Unknown]
  - Drug ineffective [Unknown]
  - Balance disorder [Not Recovered/Not Resolved]
  - Disease progression [Unknown]
  - Neurological decompensation [Unknown]
  - Blood calcium decreased [Unknown]
  - Mobility decreased [Not Recovered/Not Resolved]
  - Hypocalcaemia [Unknown]
  - Primary familial brain calcification [Not Recovered/Not Resolved]
  - Pain in extremity [Not Recovered/Not Resolved]

NARRATIVE: CASE EVENT DATE: 201912
